FAERS Safety Report 19489569 (Version 4)
Quarter: 2021Q3

REPORT INFORMATION
  Report Type: Report from Study
  Country: TH (occurrence: TH)
  Receive Date: 20210703
  Receipt Date: 20210810
  Transmission Date: 20211014
  Serious: Yes (Hospitalization)
  Sender: FDA-Public Use
  Company Number: TH-SEAGEN-2021SGN03505

PATIENT
  Age: 22 Year
  Sex: Female

DRUGS (1)
  1. BRENTUXIMAB VEDOTIN [Suspect]
     Active Substance: BRENTUXIMAB VEDOTIN
     Indication: HODGKIN^S DISEASE
     Dosage: 72 MILLIGRAM, Q3WEEKS
     Route: 042
     Dates: start: 20210618

REACTIONS (6)
  - Diarrhoea [Unknown]
  - COVID-19 [Unknown]
  - Vomiting [Unknown]
  - White blood cell count decreased [Unknown]
  - Platelet count decreased [Unknown]
  - Pyrexia [Unknown]
